FAERS Safety Report 8962634 (Version 1)
Quarter: 2012Q4

REPORT INFORMATION
  Report Type: 
  Country: AU (occurrence: AU)
  Receive Date: 20121214
  Receipt Date: 20121214
  Transmission Date: 20130627
  Serious: Yes (Other)
  Sender: FDA-Public Use
  Company Number: PHHY2012AU113185

PATIENT
  Age: 57 Year
  Sex: Female

DRUGS (1)
  1. ZOLEDRONIC ACID [Suspect]
     Indication: OSTEOPOROSIS

REACTIONS (17)
  - Dermatomyositis [Recovered/Resolved]
  - Rash macular [Recovered/Resolved]
  - Rash erythematous [Recovered/Resolved]
  - Rash generalised [Recovered/Resolved]
  - Telangiectasia [Recovering/Resolving]
  - Atrophy [Not Recovered/Not Resolved]
  - Poikiloderma [Recovering/Resolving]
  - Muscular weakness [Recovered/Resolved]
  - Blood creatine phosphokinase increased [Recovering/Resolving]
  - Asthenia [Recovering/Resolving]
  - Gait disturbance [Recovering/Resolving]
  - Abdominal distension [Recovering/Resolving]
  - Weight decreased [Recovering/Resolving]
  - Headache [Recovering/Resolving]
  - Pain in extremity [Recovering/Resolving]
  - Fatigue [Recovering/Resolving]
  - Constipation [Recovering/Resolving]
